FAERS Safety Report 7762670-X (Version None)
Quarter: 2011Q3

REPORT INFORMATION
  Report Type: 
  Country: None (occurrence: None)
  Receive Date: 20110920
  Receipt Date: 20110915
  Transmission Date: 20111222
  Serious: Yes (Life-Threatening, Other)
  Sender: FDA-Public Use
  Company Number: FR-CELGENEUS-056-21880-11091915

PATIENT
  Sex: Male
  Weight: 78 kg

DRUGS (5)
  1. REVLIMID [Suspect]
     Dosage: 10 MILLIGRAM
     Route: 048
     Dates: start: 20110101
  2. DEXAMETHASONE [Concomitant]
     Dosage: 20 MILLIGRAM
     Route: 065
  3. REVLIMID [Suspect]
     Indication: MYELOMA RECURRENCE
     Dosage: 10 MILLIGRAM
     Route: 048
     Dates: start: 20090101
  4. DEXAMETHASONE [Concomitant]
     Indication: MULTIPLE MYELOMA
     Dosage: 20 MILLIGRAM
     Route: 065
     Dates: start: 20090101
  5. REVLIMID [Suspect]
     Dosage: 25 MILLIGRAM
     Route: 048

REACTIONS (3)
  - MYOCARDIAL INFARCTION [None]
  - SUPERFICIAL SPREADING MELANOMA STAGE II [None]
  - RENAL FAILURE [None]
